FAERS Safety Report 24566671 (Version 1)
Quarter: 2024Q4

REPORT INFORMATION
  Report Type: Spontaneous
  Country: JP (occurrence: JP)
  Receive Date: 20241030
  Receipt Date: 20241030
  Transmission Date: 20250114
  Serious: Yes (Other)
  Sender: NOVITIUM PHARMA
  Company Number: JP-NOVITIUMPHARMA-2024JPNVP02385

PATIENT
  Age: 73 Year
  Sex: Male

DRUGS (4)
  1. DEXAMETHASONE [Suspect]
     Active Substance: DEXAMETHASONE
     Indication: Diffuse large B-cell lymphoma
  2. GEMCITABINE [Concomitant]
     Active Substance: GEMCITABINE
     Indication: Diffuse large B-cell lymphoma
  3. CARBOPLATIN [Concomitant]
     Active Substance: CARBOPLATIN
     Indication: Diffuse large B-cell lymphoma
  4. RITUXIMAB [Concomitant]
     Active Substance: RITUXIMAB
     Indication: Diffuse large B-cell lymphoma

REACTIONS (2)
  - Myelosuppression [Recovering/Resolving]
  - Delirium [Recovering/Resolving]
